FAERS Safety Report 5747441-8 (Version None)
Quarter: 2008Q2

REPORT INFORMATION
  Report Type: 
  Country: None (occurrence: None)
  Receive Date: 20080523
  Receipt Date: 20080519
  Transmission Date: 20081010
  Serious: Yes (Hospitalization)
  Sender: FDA-Public Use
  Company Number: ES-BAYER-200818655GPV

PATIENT
  Age: 80 Year
  Sex: Female

DRUGS (2)
  1. NIMOTOP / NIMODIPIN [Suspect]
     Indication: DRUG USE FOR UNKNOWN INDICATION
     Route: 048
     Dates: start: 20070101
  2. CIPROFLOXACINO TEVA / CIPROFLOXACIN [Interacting]
     Indication: CYSTITIS
     Dosage: TOTAL DAILY DOSE: 1 G  UNIT DOSE: 500 MG
     Route: 048
     Dates: start: 20080411, end: 20080411

REACTIONS (2)
  - ATRIAL FIBRILLATION [None]
  - CARDIOGENIC SHOCK [None]
